FAERS Safety Report 22049112 (Version 1)
Quarter: 2023Q1

REPORT INFORMATION
  Report Type: Other
  Country: CN (occurrence: None)
  Receive Date: 20230301
  Receipt Date: 20230301
  Transmission Date: 20230418
  Serious: Yes (Other)
  Sender: FDA-Public Use
  Company Number: CN-ROCHE-3293595

PATIENT
  Age: 8 Year
  Sex: Male

DRUGS (1)
  1. RITUXIMAB [Suspect]
     Active Substance: RITUXIMAB
     Indication: Encephalitis autoimmune
     Dosage: BODY SURFACE AREA, EVERY 2 WEEKSX2 WEEKS
     Route: 042

REACTIONS (2)
  - Infection [Unknown]
  - Off label use [Unknown]
